FAERS Safety Report 20621814 (Version 2)
Quarter: 2022Q4

REPORT INFORMATION
  Report Type: Report from Study
  Country: IN (occurrence: IN)
  Receive Date: 20220322
  Receipt Date: 20221007
  Transmission Date: 20230113
  Serious: Yes (Other)
  Sender: FDA-Public Use
  Company Number: IN-NOVARTISPH-PHHY2016IN002283

PATIENT
  Age: 43 Year
  Sex: Female
  Weight: 50 kg

DRUGS (5)
  1. TASIGNA [Suspect]
     Active Substance: NILOTINIB
     Indication: Chronic myeloid leukaemia
     Dosage: 300 MG, BID
     Route: 048
     Dates: start: 20151104, end: 20181014
  2. TASIGNA [Suspect]
     Active Substance: NILOTINIB
     Dosage: 150 MG, BID
     Route: 048
     Dates: start: 20181015, end: 20181021
  3. TASIGNA [Suspect]
     Active Substance: NILOTINIB
     Dosage: 300 MG, BID
     Route: 048
     Dates: start: 20181022
  4. TASIGNA [Suspect]
     Active Substance: NILOTINIB
     Dosage: 450 MG, BID (300 MG IN THE MORNING 150 MG IN THE EVENING)
     Route: 065
     Dates: start: 20190807
  5. TASIGNA [Suspect]
     Active Substance: NILOTINIB
     Dosage: 300 MG, BID
     Route: 065
     Dates: start: 20221001

REACTIONS (10)
  - Urethral stenosis [Unknown]
  - Urinary incontinence [Unknown]
  - Dental caries [Recovered/Resolved]
  - Platelet count decreased [Not Recovered/Not Resolved]
  - Abdominal discomfort [Not Recovered/Not Resolved]
  - Underdose [Recovered/Resolved]
  - Haemoglobin decreased [Not Recovered/Not Resolved]
  - Constipation [Not Recovered/Not Resolved]
  - Dyspepsia [Not Recovered/Not Resolved]
  - Product use issue [Unknown]

NARRATIVE: CASE EVENT DATE: 20151201
